FAERS Safety Report 4435384-1 (Version None)
Quarter: 2004Q3

REPORT INFORMATION
  Report Type: 
  Country: None (occurrence: None)
  Receive Date: 20040826
  Receipt Date: 20040816
  Transmission Date: 20050211
  Serious: Yes (Death, Hospitalization)
  Sender: FDA-Public Use
  Company Number: 208215

PATIENT
  Age: 68 Year
  Sex: Male

DRUGS (4)
  1. AVASTIN [Suspect]
     Indication: COLON CANCER
     Dosage: 7.5 MG/KG, INTRAVENOUS
     Route: 042
     Dates: start: 20040624, end: 20040708
  2. OXALIPLATIN [Concomitant]
  3. FLUOROURACIL [Concomitant]
  4. CORTICOID (CORTICOIDS NOS) [Concomitant]

REACTIONS (9)
  - CHEYNE-STOKES RESPIRATION [None]
  - CONFUSIONAL STATE [None]
  - DRUG INEFFECTIVE [None]
  - GENERAL PHYSICAL HEALTH DETERIORATION [None]
  - MENTAL DISORDER DUE TO A GENERAL MEDICAL CONDITION [None]
  - PANIC ATTACK [None]
  - RESPIRATORY FAILURE [None]
  - RESTLESSNESS [None]
  - SOMNOLENCE [None]
